FAERS Safety Report 5402801-X (Version None)
Quarter: 2007Q3

REPORT INFORMATION
  Report Type: 
  Country: None (occurrence: None)
  Receive Date: 20070801
  Receipt Date: 20070717
  Transmission Date: 20080115
  Serious: Yes (Death, Hospitalization)
  Sender: FDA-Public Use
  Company Number: NO-MERCK-0702NOR00010

PATIENT
  Age: 82 Year
  Sex: Female

DRUGS (4)
  1. ZOCOR [Suspect]
     Indication: HYPERCHOLESTEROLAEMIA
     Route: 048
     Dates: start: 20060301
  2. WARFARIN SODIUM [Suspect]
     Indication: THROMBOSIS PROPHYLAXIS
     Route: 048
  3. WARFARIN SODIUM [Suspect]
     Indication: PULMONARY EMBOLISM
     Route: 048
  4. ASPIRIN AND MAGNESIUM OXIDE [Concomitant]
     Indication: CEREBRAL INFARCTION
     Route: 048
     Dates: start: 20010101

REACTIONS (3)
  - CEREBRAL HAEMORRHAGE [None]
  - DEATH [None]
  - DRUG INTERACTION [None]
